FAERS Safety Report 12075496 (Version 1)
Quarter: 2016Q1

REPORT INFORMATION
  Report Type: Spontaneous
  Country: US (occurrence: US)
  Receive Date: 20160213
  Receipt Date: 20160213
  Transmission Date: 20160526
  Serious: Yes (Death, Hospitalization, Other)
  Sender: FDA-Public Use
  Company Number: US-ABBVIE-16K-163-1558900-00

PATIENT
  Sex: Female
  Weight: 63.56 kg

DRUGS (2)
  1. METHOTREXATE [Concomitant]
     Active Substance: METHOTREXATE
     Indication: PRODUCT USED FOR UNKNOWN INDICATION
  2. HUMIRA [Suspect]
     Active Substance: ADALIMUMAB
     Indication: RHEUMATOID ARTHRITIS
     Route: 058
     Dates: end: 201405

REACTIONS (4)
  - Haemorrhage [Recovered/Resolved]
  - Respiratory tract infection [Not Recovered/Not Resolved]
  - Weight decreased [Recovered/Resolved]
  - Hodgkin^s disease [Fatal]

NARRATIVE: CASE EVENT DATE: 2014
